FAERS Safety Report 9428206 (Version 1)
Quarter: 2013Q3

REPORT INFORMATION
  Report Type: Spontaneous
  Country: US (occurrence: US)
  Receive Date: 20130730
  Receipt Date: 20130730
  Transmission Date: 20140515
  Serious: No
  Sender: FDA-Public Use
  Company Number: US-GLAXOSMITHKLINE-A0981408A

PATIENT
  Sex: Male

DRUGS (9)
  1. ZANTAC [Suspect]
     Indication: DYSPEPSIA
     Route: 048
     Dates: start: 201203, end: 201203
  2. CELEXA [Concomitant]
  3. LISINOPRIL [Concomitant]
  4. NAPROXEN [Concomitant]
  5. TRAZODONE [Concomitant]
  6. AMITRIPTYLINE [Concomitant]
  7. GABAPENTIN [Concomitant]
  8. XANAX [Concomitant]
  9. REBIF [Concomitant]

REACTIONS (1)
  - Drug screen positive [Unknown]
